FAERS Safety Report 8807474 (Version 4)
Quarter: 2013Q2

REPORT INFORMATION
  Report Type: Spontaneous
  Country: US (occurrence: US)
  Receive Date: 20120911
  Receipt Date: 20130411
  Transmission Date: 20140414
  Serious: Yes (Other)
  Sender: FDA-Public Use
  Company Number: US-ASTRAZENECA-2012SE11942

PATIENT
  Age: 84 Year
  Sex: Female

DRUGS (3)
  1. CRESTOR [Suspect]
     Route: 048
  2. A LOT OF MEDICATIONS [Suspect]
     Route: 065
  3. SIMVASTATIN [Concomitant]

REACTIONS (9)
  - Fall [Unknown]
  - Gait disturbance [Unknown]
  - Dysstasia [Unknown]
  - Hearing impaired [Unknown]
  - Hyperthyroidism [Unknown]
  - Irritability [Unknown]
  - Malaise [Unknown]
  - Renal artery occlusion [Unknown]
  - Neuropathy peripheral [Unknown]
